FAERS Safety Report 15202372 (Version 1)
Quarter: 2018Q3

REPORT INFORMATION
  Report Type: Spontaneous
  Country: US (occurrence: US)
  Receive Date: 20180627
  Receipt Date: 20180627
  Transmission Date: 20181010
  Serious: Yes (Other)
  Sender: FDA-Public Use
  Company Number: None

PATIENT
  Age: 68 Year
  Sex: Female
  Weight: 65.77 kg

DRUGS (23)
  1. DEXILANT [Concomitant]
     Active Substance: DEXLANSOPRAZOLE
  2. AMBIEN [Concomitant]
     Active Substance: ZOLPIDEM TARTRATE
  3. FLONASE [Concomitant]
     Active Substance: FLUTICASONE PROPIONATE
  4. LOW DOSE ASPIRIN [Concomitant]
     Active Substance: ASPIRIN
  5. GLUCOSAMINE [Concomitant]
     Active Substance: GLUCOSAMINE
  6. MILK THISTLE [Concomitant]
     Active Substance: DIETARY SUPPLEMENT\HERBALS\MILK THISTLE
  7. XIIDRA [Suspect]
     Active Substance: LIFITEGRAST
     Indication: DRY EYE
     Dosage: ?          QUANTITY:1 DROP IN EACH EYE;?
     Route: 047
     Dates: start: 20180603, end: 20180603
  8. HYDROCHLOROT [Concomitant]
     Active Substance: HYDROCHLOROTHIAZIDE
  9. ZOFRAN [Concomitant]
     Active Substance: ONDANSETRON HYDROCHLORIDE
  10. CLONAZEPAM. [Concomitant]
     Active Substance: CLONAZEPAM
  11. ZYRTEC [Concomitant]
     Active Substance: CETIRIZINE HYDROCHLORIDE
  12. CHLOR TABS [Concomitant]
  13. METAMUCIL [Concomitant]
     Active Substance: PLANTAGO SEED
  14. LISINOPRIL. [Concomitant]
     Active Substance: LISINOPRIL
  15. ESTRADIOL. [Concomitant]
     Active Substance: ESTRADIOL
  16. FOLIC ACID. [Concomitant]
     Active Substance: FOLIC ACID
  17. LIPITOR [Concomitant]
     Active Substance: ATORVASTATIN CALCIUM
  18. FISH OIL [Concomitant]
     Active Substance: FISH OIL
  19. VITAMIN B?6 [Concomitant]
     Active Substance: PYRIDOXINE
  20. MULTI VITAMIN [Concomitant]
     Active Substance: VITAMINS
  21. SYMBICORT [Concomitant]
     Active Substance: BUDESONIDE\FORMOTEROL FUMARATE DIHYDRATE
  22. VITAMIN B12 [Concomitant]
     Active Substance: CYANOCOBALAMIN
  23. COQ10 [Concomitant]
     Active Substance: UBIDECARENONE

REACTIONS (6)
  - Lip swelling [None]
  - Eye contusion [None]
  - Dysphagia [None]
  - Swelling face [None]
  - Swelling [None]
  - Anaphylactic shock [None]

NARRATIVE: CASE EVENT DATE: 20180603
